FAERS Safety Report 10574021 (Version 1)
Quarter: 2014Q4

REPORT INFORMATION
  Report Type: Spontaneous
  Country: IT (occurrence: IT)
  Receive Date: 20141110
  Receipt Date: 20141110
  Transmission Date: 20150529
  Serious: Yes (Other)
  Sender: FDA-Public Use
  Company Number: PHHY2014IT143317

PATIENT
  Sex: Female

DRUGS (1)
  1. FLUOXETINE [Suspect]
     Active Substance: FLUOXETINE\FLUOXETINE HYDROCHLORIDE
     Indication: DEPRESSION
     Dosage: 20 MG, QD
     Route: 065
     Dates: start: 2008

REACTIONS (13)
  - Agitated depression [Unknown]
  - Binge eating [Recovered/Resolved]
  - Tension [Unknown]
  - Psychomotor hyperactivity [Unknown]
  - Insomnia [Unknown]
  - Feelings of worthlessness [Unknown]
  - Irritability [Unknown]
  - Sexual activity increased [Unknown]
  - Anxiety [Recovered/Resolved]
  - Depressed mood [Unknown]
  - Thinking abnormal [Unknown]
  - Self-induced vomiting [Unknown]
  - Psychiatric decompensation [Unknown]
